FAERS Safety Report 7434761-4 (Version None)
Quarter: 2011Q2

REPORT INFORMATION
  Report Type: 
  Country: None (occurrence: None)
  Receive Date: 20110425
  Receipt Date: 20110412
  Transmission Date: 20111010
  Serious: Yes (Death)
  Sender: FDA-Public Use
  Company Number: CZ-CELGENEUS-217-21880-11041321

PATIENT
  Age: 66 Year
  Sex: Female

DRUGS (8)
  1. FUROSEMIDE [Concomitant]
     Dosage: 500 MILLIGRAM
     Route: 065
  2. REVLIMID [Suspect]
     Indication: MULTIPLE MYELOMA
     Route: 048
     Dates: start: 20110318, end: 20110401
  3. FLUCONAZOLE [Concomitant]
     Dosage: 200 MILLIGRAM
     Route: 065
  4. METOCLOPRAMIDE [Concomitant]
     Dosage: 30 MILLIGRAM
     Route: 065
  5. FILGRASTIM [Concomitant]
     Dosage: 600 MICROGRAM
     Route: 065
     Dates: start: 20110406
  6. DEXAMETHASONE [Suspect]
     Indication: MULTIPLE MYELOMA
     Route: 048
     Dates: start: 20110318, end: 20110403
  7. TRIMETHOPRIM + SULFAMETHOXAZOLE [Concomitant]
     Dosage: 960 MILLIGRAM
     Route: 065
  8. AMLODIPINE [Concomitant]
     Dosage: 5 MILLIGRAM
     Route: 065

REACTIONS (1)
  - DEATH [None]
